FAERS Safety Report 6459224-4 (Version None)
Quarter: 2009Q4

REPORT INFORMATION
  Report Type: 
  Country: None (occurrence: None)
  Receive Date: 20091127
  Receipt Date: 20090804
  Transmission Date: 20100525
  Serious: No
  Sender: FDA-Public Use
  Company Number: US-AMGEN-KDL358807

PATIENT
  Sex: Female
  Weight: 98.5 kg

DRUGS (2)
  1. ENBREL [Suspect]
     Indication: RHEUMATOID ARTHRITIS
     Route: 058
     Dates: start: 20051201
  2. PLAQUENIL [Concomitant]
     Route: 048

REACTIONS (2)
  - INFECTIOUS MONONUCLEOSIS [None]
  - INJECTION SITE HAEMORRHAGE [None]
